FAERS Safety Report 20446481 (Version 1)
Quarter: 2022Q1

REPORT INFORMATION
  Report Type: Spontaneous
  Country: US (occurrence: US)
  Receive Date: 20220208
  Receipt Date: 20220208
  Transmission Date: 20220423
  Serious: No
  Sender: FDA-Public Use
  Company Number: US-JUBILANT CADISTA PHARMACEUTICALS-2021JUB00114

PATIENT
  Sex: Female
  Weight: 66.213 kg

DRUGS (6)
  1. VALSARTAN [Suspect]
     Active Substance: VALSARTAN
     Indication: Hypertension
     Dosage: 40 MG, 1X/DAY
     Route: 048
     Dates: start: 2018, end: 2020
  2. VALSARTAN [Suspect]
     Active Substance: VALSARTAN
     Dosage: 40 MG, 1X/DAY
     Route: 048
     Dates: start: 202101, end: 2021
  3. VALSARTAN [Suspect]
     Active Substance: VALSARTAN
     Dosage: 20 MG, ONCE
     Route: 048
     Dates: start: 2021, end: 2021
  4. VALSARTAN [Suspect]
     Active Substance: VALSARTAN
     Dosage: 40 MG, 1X/DAY
     Route: 048
     Dates: start: 2021, end: 20210403
  5. VALSARTAN [Suspect]
     Active Substance: VALSARTAN
     Indication: Hypertension
     Dosage: 80 MG, 1X/DAY
     Route: 048
     Dates: start: 2020, end: 2021
  6. VALSARTAN [Suspect]
     Active Substance: VALSARTAN
     Dosage: 40 MG (HALF OF AN 80 MG TABLET)
     Dates: start: 2021, end: 2021

REACTIONS (4)
  - Nasal congestion [Not Recovered/Not Resolved]
  - Anxiety [Recovered/Resolved]
  - Headache [Recovered/Resolved]
  - Product substitution issue [Recovered/Resolved]

NARRATIVE: CASE EVENT DATE: 20180101
